FAERS Safety Report 10436166 (Version 2)
Quarter: 2014Q3

REPORT INFORMATION
  Report Type: Spontaneous
  Country: BR (occurrence: BR)
  Receive Date: 20140908
  Receipt Date: 20140912
  Transmission Date: 20150326
  Serious: Yes (Life-Threatening, Other)
  Sender: FDA-Public Use
  Company Number: PHHY2014BR107807

PATIENT
  Age: 33 Year
  Sex: Female
  Weight: 68 kg

DRUGS (7)
  1. ILARIS [Suspect]
     Active Substance: CANAKINUMAB
     Indication: STILL^S DISEASE ADULT ONSET
     Dosage: 1 DF, EACH 4 WEEKS
     Route: 058
     Dates: start: 201309
  2. RISEDRONATE SODIUM. [Concomitant]
     Active Substance: RISEDRONATE SODIUM
     Indication: OSTEOPOROSIS PROPHYLAXIS
     Dosage: 35 MG, QW
     Route: 048
     Dates: start: 201303
  3. DIENOGEST [Concomitant]
     Active Substance: DIENOGEST
     Indication: CONTRACEPTION
     Dosage: 1 DF, DAILY
     Route: 048
  4. METICORTEN [Concomitant]
     Active Substance: PREDNISONE
     Indication: STILL^S DISEASE ADULT ONSET
     Dosage: 20 MG, DAILY
     Route: 048
     Dates: start: 201212
  5. METICORTEN [Concomitant]
     Active Substance: PREDNISONE
     Dosage: 60 MG, DAILY
     Route: 048
     Dates: start: 20140725
  6. ILARIS [Suspect]
     Active Substance: CANAKINUMAB
     Dosage: 1 DF, EACH 4 WEEKS
     Route: 058
     Dates: end: 20140725
  7. OSTEONUTRI [Concomitant]
     Indication: OSTEOPOROSIS PROPHYLAXIS
     Dosage: 1 DF, DAILY
     Route: 048
     Dates: start: 201212

REACTIONS (1)
  - Thrombocytopenia [Not Recovered/Not Resolved]

NARRATIVE: CASE EVENT DATE: 20140725
